FAERS Safety Report 5030650-3 (Version None)
Quarter: 2006Q2

REPORT INFORMATION
  Report Type: 
  Country: None (occurrence: None)
  Receive Date: 20060615
  Receipt Date: 20060525
  Transmission Date: 20061013
  Serious: Yes (Hospitalization)
  Sender: FDA-Public Use
  Company Number: 2003-109508-NL

PATIENT
  Age: 30 Year
  Sex: Male

DRUGS (13)
  1. DANAPAROID SODIUM [Suspect]
     Indication: DISSEMINATED INTRAVASCULAR COAGULATION
     Dosage: 2500 ANTI-XA INTRAVENOUS (NOS)
     Route: 042
     Dates: start: 20030803, end: 20030826
  2. HEPARIN-FRACTION, SOLDIUM SALT [Concomitant]
  3. NEUPOGEN [Concomitant]
  4. CYCLOSPORINE [Concomitant]
  5. CEFEPIME HYDROCHLORIDE [Concomitant]
  6. FLUCONAZOLE [Concomitant]
  7. ACYCLOVIR [Concomitant]
  8. GAMIMUNE N 5% [Concomitant]
  9. MEROPENEM [Concomitant]
  10. METILMICIN SULFATE [Concomitant]
  11. LEVOFLOXACIN [Concomitant]
  12. METHYLPREDNISOLONE SODIUM SUCCINATE [Concomitant]
  13. RAXATIDINE ACETATE HYDROCHLORIDE [Concomitant]

REACTIONS (6)
  - BLOOD FIBRINOGEN ABNORMAL [None]
  - BLOOD UREA INCREASED [None]
  - CYSTITIS HAEMORRHAGIC [None]
  - CYSTITIS VIRAL [None]
  - HAEMATURIA [None]
  - PROTEINURIA [None]
